FAERS Safety Report 10095306 (Version 4)
Quarter: 2014Q2

REPORT INFORMATION
  Report Type: Spontaneous
  Country: JP (occurrence: JP)
  Receive Date: 20140422
  Receipt Date: 20140609
  Transmission Date: 20141212
  Serious: Yes (Hospitalization)
  Sender: FDA-Public Use
  Company Number: JP-B.I. PHARMACEUTICALS,INC./RIDGEFIELD-2014-BI-17963NB

PATIENT
  Age: 77 Year
  Sex: Male
  Weight: 69 kg

DRUGS (11)
  1. PRADAXA [Suspect]
     Indication: ATRIAL FIBRILLATION
     Dosage: 220 MG
     Route: 048
     Dates: start: 20120517, end: 20140404
  2. PLETAAL OD [Suspect]
     Indication: PERIPHERAL ARTERIAL OCCLUSIVE DISEASE
     Dosage: 200 MG
     Route: 048
     Dates: end: 20140404
  3. MICARDIS [Concomitant]
     Indication: HYPERTENSION
     Dosage: 40 MG
     Route: 048
  4. ZETIA [Concomitant]
     Indication: DYSLIPIDAEMIA
     Dosage: 10 MG
     Route: 048
  5. ZANTAC [Concomitant]
     Indication: GASTRITIS
     Dosage: 75 MG
     Route: 048
  6. TRAZENTA [Concomitant]
     Indication: DIABETES MELLITUS
     Dosage: 5 MG
     Route: 048
  7. HERBESSER R [Concomitant]
     Indication: ATRIAL FIBRILLATION
     Dosage: 200 MG
     Route: 048
  8. CALBLOCK [Concomitant]
     Indication: HYPERTENSION
     Dosage: 8 MG
     Route: 048
  9. AMOBAN [Concomitant]
     Indication: INSOMNIA
     Dosage: 10 MG
     Route: 048
  10. GLUFAST [Concomitant]
     Indication: DIABETES MELLITUS
     Dosage: 30 MG
     Route: 048
  11. LANTUS [Concomitant]
     Indication: DIABETES MELLITUS
     Dosage: 4 U
     Route: 058

REACTIONS (1)
  - Peripheral embolism [Not Recovered/Not Resolved]
